FAERS Safety Report 15511646 (Version 1)
Quarter: 2018Q4

REPORT INFORMATION
  Report Type: Spontaneous
  Country: US (occurrence: US)
  Receive Date: 20181015
  Receipt Date: 20181015
  Transmission Date: 20190205
  Serious: Yes (Death)
  Sender: FDA-Public Use
  Company Number: None

PATIENT
  Age: 43 Year
  Sex: Female

DRUGS (1)
  1. JOHNSONS BABY POWDER (TALC) [Suspect]
     Active Substance: TALC
     Indication: PRODUCT USED FOR UNKNOWN INDICATION
     Route: 061
     Dates: start: 199201, end: 201401

REACTIONS (3)
  - Injury [None]
  - Death [None]
  - Legal problem [None]

NARRATIVE: CASE EVENT DATE: 20100501
